FAERS Safety Report 22245633 (Version 3)
Quarter: 2023Q2

REPORT INFORMATION
  Report Type: Report from Study
  Country: IL (occurrence: IL)
  Receive Date: 20230424
  Receipt Date: 20230629
  Transmission Date: 20230722
  Serious: Yes (Death, Hospitalization, Other)
  Sender: FDA-Public Use
  Company Number: IL-ABBVIE-21K-082-4171700-00

PATIENT
  Age: 76 Year
  Sex: Male
  Weight: 78 kg

DRUGS (52)
  1. VENETOCLAX [Suspect]
     Active Substance: VENETOCLAX
     Indication: Acute myeloid leukaemia
     Dosage: 100 MG, RAMP UP
     Route: 048
     Dates: start: 20211017, end: 20211017
  2. VENETOCLAX [Suspect]
     Active Substance: VENETOCLAX
     Indication: Acute myeloid leukaemia
     Dosage: 200 MG, RAMP UP
     Route: 048
     Dates: start: 20211018, end: 20211018
  3. VENETOCLAX [Suspect]
     Active Substance: VENETOCLAX
     Indication: Acute myeloid leukaemia
     Dosage: 300 MG, RAMP UP
     Route: 048
     Dates: start: 20211019, end: 20211019
  4. VENETOCLAX [Suspect]
     Active Substance: VENETOCLAX
     Indication: Acute myeloid leukaemia
     Dosage: 400 MG, RAMP UP
     Route: 048
     Dates: start: 20211020, end: 20211101
  5. VENETOCLAX [Suspect]
     Active Substance: VENETOCLAX
     Indication: Acute myeloid leukaemia
     Dosage: 300 MG, RAMP UP?INTERRUPTION DUE TO AE
     Route: 048
     Dates: start: 20211102, end: 20211105
  6. VENETOCLAX [Suspect]
     Active Substance: VENETOCLAX
     Indication: Acute myeloid leukaemia
     Dosage: 300 MILLIGRAM?DISCONTINUATION DUE TO AE
     Route: 048
     Dates: start: 20211108, end: 20230201
  7. AZACITIDINE [Suspect]
     Active Substance: AZACITIDINE
     Indication: Acute myeloid leukaemia
     Dosage: 130 MILLIGRAM
     Route: 042
     Dates: start: 20220116, end: 20220120
  8. AZACITIDINE [Suspect]
     Active Substance: AZACITIDINE
     Indication: Acute myeloid leukaemia
     Dosage: 140 MILLIGRAM
     Route: 042
     Dates: start: 20211118, end: 20211118
  9. AZACITIDINE [Suspect]
     Active Substance: AZACITIDINE
     Indication: Acute myeloid leukaemia
     Dosage: CYCLE 1, 140 MG
     Route: 042
     Dates: start: 20211017, end: 20211021
  10. AZACITIDINE [Suspect]
     Active Substance: AZACITIDINE
     Indication: Acute myeloid leukaemia
     Dosage: 140 MILLIGRAM
     Route: 042
     Dates: start: 20211212, end: 20211216
  11. AZACITIDINE [Suspect]
     Active Substance: AZACITIDINE
     Indication: Acute myeloid leukaemia
     Dosage: 140 MILLIGRAM
     Route: 042
     Dates: start: 20211024, end: 20211025
  12. AZACITIDINE [Suspect]
     Active Substance: AZACITIDINE
     Indication: Acute myeloid leukaemia
     Dosage: 130 MILLIGRAM
     Route: 042
     Dates: start: 20220123, end: 20220124
  13. AZACITIDINE [Suspect]
     Active Substance: AZACITIDINE
     Indication: Acute myeloid leukaemia
     Dosage: 140 MG
     Route: 042
     Dates: start: 20211219, end: 20211220
  14. AZACITIDINE [Suspect]
     Active Substance: AZACITIDINE
     Indication: Acute myeloid leukaemia
     Dosage: 140 MILLIGRAM
     Route: 042
     Dates: start: 20211121, end: 20211123
  15. AZACITIDINE [Suspect]
     Active Substance: AZACITIDINE
     Indication: Acute myeloid leukaemia
     Dosage: 140 MILLIGRAM
     Route: 042
     Dates: start: 20211114, end: 20211116
  16. AZACITIDINE [Suspect]
     Active Substance: AZACITIDINE
     Indication: Acute myeloid leukaemia
     Dosage: 130 MILLIGRAM?DAILY DOSE MODIFICATION -COUNT RECOVERY
     Route: 042
     Dates: start: 20220417, end: 20220420
  17. AZACITIDINE [Suspect]
     Active Substance: AZACITIDINE
     Indication: Acute myeloid leukaemia
     Dosage: 130 MILLIGRAM?DAILY DOSE MODIFICATION -COUNT RECOVERY
     Route: 042
     Dates: start: 20220515, end: 20220519
  18. AZACITIDINE [Suspect]
     Active Substance: AZACITIDINE
     Indication: Acute myeloid leukaemia
     Dosage: 130 MILLIGRAM?DAILY DOSE MODIFICATION -COUNT RECOVERY
     Route: 042
     Dates: start: 20221023, end: 20221026
  19. AZACITIDINE [Suspect]
     Active Substance: AZACITIDINE
     Indication: Acute myeloid leukaemia
     Dosage: 130 MILLIGRAM?DAILY DOSE MODIFICATION -COUNT RECOVERY
     Route: 042
     Dates: start: 20221127, end: 20221128
  20. AZACITIDINE [Suspect]
     Active Substance: AZACITIDINE
     Indication: Acute myeloid leukaemia
     Dosage: 130 MILLIGRAM?DAILY DOSE MODIFICATION -COUNT RECOVERY
     Route: 042
     Dates: start: 20220320, end: 20220324
  21. AZACITIDINE [Suspect]
     Active Substance: AZACITIDINE
     Indication: Acute myeloid leukaemia
     Dosage: 130 MILLIGRAM?DAILY DOSE MODIFICATION -COUNT RECOVERY
     Route: 042
     Dates: start: 20221120, end: 20221124
  22. AZACITIDINE [Suspect]
     Active Substance: AZACITIDINE
     Indication: Acute myeloid leukaemia
     Dosage: 130 MILLIGRAM\DAILY DOSE MODIFICATION -COUNT RECOVERY
     Route: 042
     Dates: start: 20230101, end: 20230101
  23. AZACITIDINE [Suspect]
     Active Substance: AZACITIDINE
     Indication: Acute myeloid leukaemia
     Dosage: 130 MILLIGRAM?DAILY DOSE MODIFICATION -COUNT RECOVERY
     Route: 042
     Dates: start: 20220717, end: 20220718
  24. AZACITIDINE [Suspect]
     Active Substance: AZACITIDINE
     Indication: Acute myeloid leukaemia
     Dosage: 130 MILLIGRAM?DAILY DOSE MODIFICATION -COUNT RECOVERY
     Route: 042
     Dates: start: 20221225, end: 20221229
  25. AZACITIDINE [Suspect]
     Active Substance: AZACITIDINE
     Indication: Acute myeloid leukaemia
     Dosage: 130 MILLIGRAM?DAILY DOSE MODIFICATION -COUNT RECOVERY
     Route: 042
     Dates: start: 20230103, end: 20230103
  26. AZACITIDINE [Suspect]
     Active Substance: AZACITIDINE
     Indication: Acute myeloid leukaemia
     Dosage: 130 MILLIGRAM?DAILY DOSE MODIFICATION -COUNT RECOVERY
     Route: 042
     Dates: start: 20230129, end: 20230129
  27. AZACITIDINE [Suspect]
     Active Substance: AZACITIDINE
     Indication: Acute myeloid leukaemia
     Dosage: 130 MILLIGRAM?DAILY DOSE MODIFICATION -COUNT RECOVERY
     Route: 042
     Dates: start: 20220424, end: 20220426
  28. AZACITIDINE [Suspect]
     Active Substance: AZACITIDINE
     Indication: Acute myeloid leukaemia
     Dosage: 130 MILLIGRAM?DAILY DOSE MODIFICATION -COUNT RECOVERY
     Route: 042
     Dates: start: 20220327, end: 20220328
  29. AZACITIDINE [Suspect]
     Active Substance: AZACITIDINE
     Indication: Acute myeloid leukaemia
     Dosage: 130 MILLIGRAM
     Route: 042
     Dates: start: 20220220, end: 20220224
  30. AZACITIDINE [Suspect]
     Active Substance: AZACITIDINE
     Indication: Acute myeloid leukaemia
     Dosage: 130 MILLIGRAM?DAILY DOSE MODIFICATION -COUNT RECOVERY
     Route: 042
     Dates: start: 20220918, end: 20220919
  31. AZACITIDINE [Suspect]
     Active Substance: AZACITIDINE
     Indication: Acute myeloid leukaemia
     Dosage: 130 MILLIGRAM?DAILY DOSE MODIFICATION -COUNT RECOVERY
     Route: 042
     Dates: start: 20221018, end: 20221020
  32. AZACITIDINE [Suspect]
     Active Substance: AZACITIDINE
     Indication: Acute myeloid leukaemia
     Dosage: 130 MILLIGRAM?DAILY DOSE MODIFICATION -COUNT RECOVERY
     Route: 042
     Dates: start: 20220619, end: 20220620
  33. AZACITIDINE [Suspect]
     Active Substance: AZACITIDINE
     Indication: Acute myeloid leukaemia
     Dosage: 130 MILLIGRAM?DAILY DOSE MODIFICATION -COUNT RECOVERY
     Route: 042
     Dates: start: 20220814, end: 20220818
  34. AZACITIDINE [Suspect]
     Active Substance: AZACITIDINE
     Indication: Acute myeloid leukaemia
     Dosage: 130 MILLIGRAM?DAILY DOSE MODIFICATION -COUNT RECOVERY
     Route: 042
     Dates: start: 20220227, end: 20220228
  35. AZACITIDINE [Suspect]
     Active Substance: AZACITIDINE
     Indication: Acute myeloid leukaemia
     Dosage: 130 MILLIGRAM?DAILY DOSE MODIFICATION -COUNT RECOVERY
     Route: 042
     Dates: start: 20220522, end: 20220523
  36. AZACITIDINE [Suspect]
     Active Substance: AZACITIDINE
     Indication: Acute myeloid leukaemia
     Dosage: 130 MILLIGRAM?DAILY DOSE MODIFICATION -COUNT RECOVERY
     Route: 042
     Dates: start: 20220911, end: 20220915
  37. AZACITIDINE [Suspect]
     Active Substance: AZACITIDINE
     Indication: Acute myeloid leukaemia
     Dosage: 130 MILLIGRAM?DAILY DOSE MODIFICATION -COUNT RECOVERY
     Route: 042
     Dates: start: 20230122, end: 20230126
  38. AZACITIDINE [Suspect]
     Active Substance: AZACITIDINE
     Indication: Acute myeloid leukaemia
     Dosage: 130 MILLIGRAM?DAILY DOSE MODIFICATION -COUNT RECOVERY
     Route: 042
     Dates: start: 20220612, end: 20220616
  39. AZACITIDINE [Suspect]
     Active Substance: AZACITIDINE
     Indication: Acute myeloid leukaemia
     Dosage: 130 MILLIGRAM?DAILY DOSE MODIFICATION -COUNT RECOVERY
     Route: 042
     Dates: start: 20220710, end: 20220714
  40. AZACITIDINE [Suspect]
     Active Substance: AZACITIDINE
     Indication: Acute myeloid leukaemia
     Dosage: 130 MILLIGRAM?DAILY DOSE MODIFICATION -COUNT RECOVERY
     Route: 042
     Dates: start: 20220821, end: 20220822
  41. PFIZER-BIONTECH COVID-19 VACCINE [Concomitant]
     Active Substance: TOZINAMERAN
     Indication: COVID-19 immunisation
     Dosage: TIME INTERVAL: 1 TOTAL
     Route: 030
     Dates: start: 20210105, end: 20210105
  42. PFIZER-BIONTECH COVID-19 VACCINE [Concomitant]
     Active Substance: TOZINAMERAN
     Indication: COVID-19 immunisation
     Dosage: TIME INTERVAL: 1 TOTAL
     Route: 030
     Dates: start: 20210817, end: 20210817
  43. ALLOPURINOL [Concomitant]
     Active Substance: ALLOPURINOL
     Indication: COVID-19 prophylaxis
     Dates: start: 20211018, end: 20211102
  44. CLONAZEPAM [Concomitant]
     Active Substance: CLONAZEPAM
     Indication: Anxiety
     Dates: start: 2013
  45. DILTIAZEM [Concomitant]
     Active Substance: DILTIAZEM
     Indication: Hypertension
     Dates: start: 200912
  46. DUTASTERIDE\TAMSULOSIN [Concomitant]
     Active Substance: DUTASTERIDE\TAMSULOSIN
     Indication: Bladder neoplasm
     Dates: start: 2014
  47. ENALAPRIL MALEATE [Concomitant]
     Active Substance: ENALAPRIL MALEATE
     Indication: Hypertension
     Dates: start: 2009
  48. ESOMEPRAZOLE [Concomitant]
     Active Substance: ESOMEPRAZOLE
     Indication: Product used for unknown indication
     Dates: start: 2015
  49. FLECAINIDE ACETATE [Concomitant]
     Active Substance: FLECAINIDE ACETATE
     Indication: Atrial fibrillation
     Dates: start: 2013
  50. TAZOBACTAM [Concomitant]
     Active Substance: TAZOBACTAM
     Indication: Febrile neutropenia
     Dates: start: 20211105, end: 20211108
  51. HUMAN RED BLOOD CELL [Concomitant]
     Active Substance: HUMAN RED BLOOD CELL
     Indication: Product used for unknown indication
     Dosage: 1 UNIT
     Dates: start: 20211105
  52. HUMAN RED BLOOD CELL [Concomitant]
     Active Substance: HUMAN RED BLOOD CELL
     Indication: Product used for unknown indication
     Dosage: 1 UNIT
     Dates: start: 20211102, end: 202111

REACTIONS (3)
  - Volvulus [Fatal]
  - Febrile neutropenia [Recovered/Resolved]
  - Neutrophil count decreased [Recovered/Resolved]

NARRATIVE: CASE EVENT DATE: 20211102
